FAERS Safety Report 8074842-8 (Version None)
Quarter: 2012Q1

REPORT INFORMATION
  Report Type: 
  Country: None (occurrence: None)
  Receive Date: 20120126
  Receipt Date: 20120117
  Transmission Date: 20120608
  Serious: Yes (Other)
  Sender: FDA-Public Use
  Company Number: FR-ASTRAZENECA-2012SE04175

PATIENT
  Age: 15877 Day
  Sex: Male

DRUGS (5)
  1. DILTIAZEM HCL [Concomitant]
  2. CRESTOR [Suspect]
     Route: 048
     Dates: start: 20090301, end: 20111223
  3. VIRAMUNE [Suspect]
     Indication: HIV INFECTION
     Route: 048
     Dates: start: 20111201, end: 20111223
  4. TRUVADA [Concomitant]
     Indication: HIV INFECTION
     Dosage: 200 MG / 245 MG
     Route: 048
     Dates: start: 20090401, end: 20111223
  5. ASPIRIN [Concomitant]

REACTIONS (1)
  - MIXED LIVER INJURY [None]
